FAERS Safety Report 8566493 (Version 7)
Quarter: 2013Q3

REPORT INFORMATION
  Report Type: Spontaneous
  Country: US (occurrence: US)
  Receive Date: 20120517
  Receipt Date: 20130723
  Transmission Date: 20140515
  Serious: Yes (Hospitalization, Disabling)
  Sender: FDA-Public Use
  Company Number: US-ASTRAZENECA-2011SE41437

PATIENT
  Age: 63 Year
  Sex: Female

DRUGS (41)
  1. NEXIUM [Suspect]
     Indication: GASTROOESOPHAGEAL REFLUX DISEASE
     Route: 048
     Dates: start: 2001, end: 201106
  2. NEXIUM [Suspect]
     Indication: DYSPEPSIA
     Route: 048
     Dates: start: 2001, end: 201106
  3. NEXIUM [Suspect]
     Indication: HIATUS HERNIA
     Route: 048
     Dates: start: 2001, end: 201106
  4. NEXIUM [Suspect]
     Indication: GASTROOESOPHAGEAL REFLUX DISEASE
     Dosage: ONCE A DAY
     Route: 048
     Dates: start: 2002
  5. NEXIUM [Suspect]
     Indication: DYSPEPSIA
     Dosage: ONCE A DAY
     Route: 048
     Dates: start: 2002
  6. NEXIUM [Suspect]
     Indication: HIATUS HERNIA
     Dosage: ONCE A DAY
     Route: 048
     Dates: start: 2002
  7. NEXIUM [Suspect]
     Indication: GASTROOESOPHAGEAL REFLUX DISEASE
     Route: 048
     Dates: start: 2005, end: 201105
  8. NEXIUM [Suspect]
     Indication: DYSPEPSIA
     Route: 048
     Dates: start: 2005, end: 201105
  9. NEXIUM [Suspect]
     Indication: HIATUS HERNIA
     Route: 048
     Dates: start: 2005, end: 201105
  10. NEXIUM [Suspect]
     Indication: GASTROOESOPHAGEAL REFLUX DISEASE
     Route: 048
     Dates: start: 20090806
  11. NEXIUM [Suspect]
     Indication: DYSPEPSIA
     Route: 048
     Dates: start: 20090806
  12. NEXIUM [Suspect]
     Indication: HIATUS HERNIA
     Route: 048
     Dates: start: 20090806
  13. NEXIUM [Suspect]
     Indication: GASTROOESOPHAGEAL REFLUX DISEASE
     Route: 048
  14. NEXIUM [Suspect]
     Indication: DYSPEPSIA
     Route: 048
  15. NEXIUM [Suspect]
     Indication: HIATUS HERNIA
     Route: 048
  16. PREVACID [Concomitant]
  17. HYZAAR [Concomitant]
     Dates: start: 20090803
  18. HYZAAR [Concomitant]
     Dosage: 50/12.5 MG TABLETS DAILY
     Dates: start: 20080415
  19. AMBIEN CR [Concomitant]
     Indication: SLEEP DISORDER
     Dates: start: 20080415
  20. AMBIEN CR [Concomitant]
     Indication: SLEEP DISORDER
     Dosage: 12.5 MG
     Dates: start: 20090804
  21. AMBIEN CR [Concomitant]
     Indication: SLEEP DISORDER
  22. AMBIEN CR [Concomitant]
     Indication: SLEEP DISORDER
  23. LISINOPRIL [Concomitant]
  24. VICODIN [Concomitant]
     Indication: PAIN
     Dosage: 5 TO 500 MG I BID
  25. VICODIN [Concomitant]
     Indication: PAIN
     Dosage: 5-500 MG TWO TIMES A DAY
  26. VICODIN [Concomitant]
     Indication: PAIN
     Dosage: 5-500 MG AS REQUIRED
  27. VICODIN [Concomitant]
     Indication: PAIN
     Dosage: 5-500 MG TABLETS ONE FOUR TIMES A DAY
     Dates: start: 20080415
  28. VICODIN [Concomitant]
     Indication: PAIN
     Dates: start: 20090804
  29. DIOVAN [Concomitant]
  30. ASPIRIN [Concomitant]
  31. LOSARTAN PATASSIUM [Concomitant]
     Indication: HYPERTENSION
     Route: 048
  32. AMLODIPINE BESYLATE [Concomitant]
     Indication: HYPERTENSION
     Dates: start: 20091130
  33. AMLODIPINE BESYLATE [Concomitant]
     Indication: HYPERTENSION
  34. AMLODIPINE BESYLATE [Concomitant]
     Indication: HYPERTENSION
  35. HYDROCHLOROTHIAZIDE [Concomitant]
     Indication: HYPERTENSION
  36. HYDROCHLOROTHIAZIDE [Concomitant]
     Indication: HYPERTENSION
  37. GLIPIZIDE [Concomitant]
     Dates: start: 20080415
  38. CITALOPRAM [Concomitant]
     Dosage: 1 DAILY
     Dates: start: 20080415
  39. ATIVAN [Concomitant]
     Dates: start: 20080415
  40. TOPROL [Concomitant]
     Dates: start: 20080415
  41. TRAMADOL [Concomitant]
     Indication: PAIN

REACTIONS (20)
  - Post-traumatic stress disorder [Unknown]
  - Tooth abscess [Unknown]
  - Oral infection [Unknown]
  - Osteoporosis [Unknown]
  - Anxiety [Unknown]
  - Bone disorder [Unknown]
  - Fracture [Unknown]
  - Multiple fractures [Unknown]
  - Cough [Unknown]
  - Intervertebral disc degeneration [Unknown]
  - Accident at work [Unknown]
  - Joint injury [Unknown]
  - Emotional distress [Unknown]
  - Osteomalacia [Unknown]
  - Pain [Unknown]
  - Rib fracture [Unknown]
  - Vitamin D deficiency [Unknown]
  - Arthralgia [Unknown]
  - Depression [Unknown]
  - Vomiting [Unknown]
